FAERS Safety Report 5418484-9 (Version None)
Quarter: 2007Q3

REPORT INFORMATION
  Report Type: 
  Country: None (occurrence: None)
  Receive Date: 20070817
  Receipt Date: 20070810
  Transmission Date: 20080115
  Serious: Yes (Disabling, Other)
  Sender: FDA-Public Use
  Company Number: US-BOEHRINGER INGELHEIM PHARMACEUTICALS, INC.-2007-BP-01442BP

PATIENT
  Sex: Male

DRUGS (21)
  1. FLOMAX [Suspect]
     Route: 048
  2. THEOPHYLLINE [Concomitant]
     Indication: ASTHMA
  3. POTASSIUM CHLORIDE [Concomitant]
  4. TRICOR [Concomitant]
  5. AMILORIDE HYDROCHLORIDE [Concomitant]
     Indication: HYPERTENSION
  6. PRILOSEC [Concomitant]
  7. LIPITOR [Concomitant]
  8. METFORMIN XL [Concomitant]
  9. SINGULAIR [Concomitant]
  10. DICLOFENAC XR [Concomitant]
  11. ADVAIR DISKUS 100/50 [Concomitant]
  12. BECONASE [Concomitant]
  13. ALBUTEROL [Concomitant]
  14. MULTIVITAMIN [Concomitant]
  15. ALAMAST DROPS [Concomitant]
  16. OPTIVAR DROPS [Concomitant]
  17. FOSAMAX [Concomitant]
  18. BENZALPRIL [Concomitant]
  19. THERAGRAN M [Concomitant]
  20. VITAMIN E [Concomitant]
  21. ASCORBIC ACID [Concomitant]

REACTIONS (6)
  - BLINDNESS [None]
  - EMOTIONAL DISTRESS [None]
  - FLOPPY IRIS SYNDROME [None]
  - PAIN [None]
  - RETINAL DETACHMENT [None]
  - VISUAL DISTURBANCE [None]
